FAERS Safety Report 25019272 (Version 1)
Quarter: 2025Q1

REPORT INFORMATION
  Report Type: Spontaneous
  Country: BE (occurrence: BE)
  Receive Date: 20250227
  Receipt Date: 20250227
  Transmission Date: 20250408
  Serious: Yes (Other)
  Sender: SANOFI AVENTIS
  Company Number: None

PATIENT
  Age: 56 Year
  Sex: Male

DRUGS (10)
  1. DUPIXENT [Suspect]
     Active Substance: DUPILUMAB
     Indication: Nasal polyps
     Dosage: 300 MG, QOW
     Route: 058
  2. NUCALA [Concomitant]
     Active Substance: MEPOLIZUMAB
  3. Pantomed [Concomitant]
  4. Ranomax [Concomitant]
  5. SERETIDE [Concomitant]
     Active Substance: FLUTICASONE PROPIONATE\SALMETEROL XINAFOATE
  6. BUDESONIDE [Concomitant]
     Active Substance: BUDESONIDE
  7. RUPATADINE [Concomitant]
     Active Substance: RUPATADINE
  8. SERTRALINE [Concomitant]
     Active Substance: SERTRALINE HYDROCHLORIDE
  9. OTILONIUM BROMIDE [Concomitant]
     Active Substance: OTILONIUM BROMIDE
  10. Algostase [Concomitant]

REACTIONS (3)
  - Chalazion [Not Recovered/Not Resolved]
  - Vitreous detachment [Not Recovered/Not Resolved]
  - Blepharitis [Not Recovered/Not Resolved]

NARRATIVE: CASE EVENT DATE: 20241001
